FAERS Safety Report 5001746-7 (Version None)
Quarter: 2006Q2

REPORT INFORMATION
  Report Type: 
  Country: None (occurrence: None)
  Receive Date: 20060515
  Receipt Date: 20060504
  Transmission Date: 20061013
  Serious: Yes (Other)
  Sender: FDA-Public Use
  Company Number: US-JNJFOC-20060501717

PATIENT
  Sex: Female
  Weight: 68.04 kg

DRUGS (6)
  1. DURAGESIC-100 [Suspect]
     Route: 062
  2. DURAGESIC-100 [Suspect]
     Route: 062
  3. DURAGESIC-100 [Suspect]
     Route: 062
  4. NEXIUM [Concomitant]
     Route: 048
  5. LEXAPRO [Concomitant]
     Indication: DEPRESSION
     Route: 048
  6. LASIX [Concomitant]
     Indication: FLUID OVERLOAD
     Route: 048

REACTIONS (4)
  - HYPERCHOLESTEROLAEMIA [None]
  - MICROANGIOPATHY [None]
  - NAUSEA [None]
  - VOMITING [None]
